FAERS Safety Report 6037511-1 (Version None)
Quarter: 2009Q1

REPORT INFORMATION
  Report Type: 
  Country: None (occurrence: None)
  Receive Date: 20090113
  Receipt Date: 20090107
  Transmission Date: 20090719
  Serious: Yes (Other)
  Sender: FDA-Public Use
  Company Number: SPV1-2009-00027

PATIENT
  Age: 10 Year
  Sex: Male
  Weight: 31.7 kg

DRUGS (1)
  1. VYVANSE [Suspect]
     Indication: ATTENTION DEFICIT/HYPERACTIVITY DISORDER
     Dosage: ONE-HALF OF A 30MG CAPSULE, 1X/DAY: QD, ORAL
     Route: 048
     Dates: start: 20080801

REACTIONS (4)
  - SCOTOMA [None]
  - VISION BLURRED [None]
  - VISUAL IMPAIRMENT [None]
  - WRONG TECHNIQUE IN DRUG USAGE PROCESS [None]
